FAERS Safety Report 25911028 (Version 1)
Quarter: 2025Q4

REPORT INFORMATION
  Report Type: Spontaneous
  Country: US (occurrence: US)
  Receive Date: 20251013
  Receipt Date: 20251013
  Transmission Date: 20260117
  Serious: No
  Sender: KVK-TECH
  Company Number: US-KVK-TECH, INC-20250300031

PATIENT
  Sex: Female

DRUGS (1)
  1. ACETAMINOPHEN\BUTALBITAL\CAFFEINE [Suspect]
     Active Substance: ACETAMINOPHEN\BUTALBITAL\CAFFEINE
     Indication: Product used for unknown indication
     Dosage: UNK, UNKNOWN
     Route: 065

REACTIONS (4)
  - Product taste abnormal [Unknown]
  - Product physical issue [Unknown]
  - Headache [Unknown]
  - Therapeutic product effect decreased [Unknown]
